FAERS Safety Report 8729876 (Version 2)
Quarter: 2014Q2

REPORT INFORMATION
  Report Type: Spontaneous
  Country: US (occurrence: US)
  Receive Date: 20120817
  Receipt Date: 20140410
  Transmission Date: 20141212
  Serious: Yes (Hospitalization)
  Sender: FDA-Public Use
  Company Number: US-GLAXOSMITHKLINE-A0989576A

PATIENT
  Age: 16 Year
  Sex: Male

DRUGS (4)
  1. FLOLAN [Suspect]
     Indication: PULMONARY ARTERIAL HYPERTENSION
     Dosage: 110NGKM CONTINUOUS
     Route: 042
     Dates: start: 20060605
  2. TRACLEER [Concomitant]
  3. ADCIRCA [Concomitant]
  4. COUMADIN [Concomitant]

REACTIONS (2)
  - Pseudomonal sepsis [Unknown]
  - Respiratory distress [Unknown]
